FAERS Safety Report 12621822 (Version 2)
Quarter: 2016Q3

REPORT INFORMATION
  Report Type: Spontaneous
  Country: IL (occurrence: IL)
  Receive Date: 20160804
  Receipt Date: 20160818
  Transmission Date: 20161109
  Serious: Yes (Hospitalization, Other)
  Sender: FDA-Public Use
  Company Number: IL-PURDUE-GBR-2016-0039327

PATIENT
  Age: 73 Year
  Sex: Male

DRUGS (1)
  1. BUTRANS [Suspect]
     Active Substance: BUPRENORPHINE
     Indication: CANCER PAIN
     Dosage: 10 MCG, Q1H
     Route: 062
     Dates: start: 20160712, end: 20160722

REACTIONS (3)
  - Delirium [Recovering/Resolving]
  - Drug dose titration not performed [Unknown]
  - Nausea [Unknown]

NARRATIVE: CASE EVENT DATE: 20160712
